FAERS Safety Report 18027747 (Version 1)
Quarter: 2020Q3

REPORT INFORMATION
  Report Type: Spontaneous
  Country: US (occurrence: US)
  Receive Date: 20200715
  Receipt Date: 20200715
  Transmission Date: 20201103
  Serious: Yes (Life-Threatening, Hospitalization)
  Sender: FDA-Public Use
  Company Number: US-MYLANLABS-2020M1064416

PATIENT
  Age: 67 Year
  Sex: Male

DRUGS (5)
  1. PROCAINAMIDE HYDROCHLORIDE. [Suspect]
     Active Substance: PROCAINAMIDE HYDROCHLORIDE
     Indication: VENTRICULAR ARRHYTHMIA
     Dosage: INFUSION
  2. ESMOLOL [Suspect]
     Active Substance: ESMOLOL HYDROCHLORIDE
     Indication: VENTRICULAR ARRHYTHMIA
     Dosage: INFUSION
  3. LIDOCAINE. [Concomitant]
     Active Substance: LIDOCAINE
     Indication: VENTRICULAR ARRHYTHMIA
     Dosage: ADMINISTERED 3 TIMES ON DIFFERENT OCCASIONS
  4. DILTIAZEM. [Suspect]
     Active Substance: DILTIAZEM
     Indication: VENTRICULAR ARRHYTHMIA
     Dosage: INFUSION
  5. AMIODARONE [Suspect]
     Active Substance: AMIODARONE
     Indication: VENTRICULAR ARRHYTHMIA
     Dosage: INFUSION

REACTIONS (1)
  - Drug ineffective [Unknown]
